FAERS Safety Report 9896056 (Version 2)
Quarter: 2014Q1

REPORT INFORMATION
  Report Type: Spontaneous
  Country: US (occurrence: US)
  Receive Date: 20140213
  Receipt Date: 20140213
  Transmission Date: 20141002
  Serious: No
  Sender: FDA-Public Use
  Company Number: US-BRISTOL-MYERS SQUIBB COMPANY-19021930

PATIENT
  Sex: Female
  Weight: 68.03 kg

DRUGS (1)
  1. ORENCIA [Suspect]
     Route: 042
     Dates: start: 201303

REACTIONS (6)
  - Red blood cell sedimentation rate increased [Unknown]
  - C-reactive protein increased [Unknown]
  - Inflammation [Unknown]
  - Musculoskeletal stiffness [Unknown]
  - Swelling [Unknown]
  - Drug ineffective [Unknown]
